FAERS Safety Report 25104735 (Version 2)
Quarter: 2025Q2

REPORT INFORMATION
  Report Type: Spontaneous
  Country: EE (occurrence: EE)
  Receive Date: 20250321
  Receipt Date: 20250415
  Transmission Date: 20250717
  Serious: No
  Sender: SUNOVION
  Company Number: EE-RICHTER-2025-GR-003104

PATIENT

DRUGS (1)
  1. ESTRADIOL\NORETHINDRONE ACETATE\RELUGOLIX [Suspect]
     Active Substance: ESTRADIOL\NORETHINDRONE ACETATE\RELUGOLIX
     Indication: Endometriosis
     Route: 048
     Dates: start: 20250216, end: 20250221

REACTIONS (2)
  - Hypertonia [Unknown]
  - Headache [Unknown]

NARRATIVE: CASE EVENT DATE: 20250201
